FAERS Safety Report 8928081 (Version 2)
Quarter: 2013Q1

REPORT INFORMATION
  Report Type: Spontaneous
  Country: CN (occurrence: None)
  Receive Date: 20121120
  Receipt Date: 20121219
  Transmission Date: 20140127
  Serious: Yes (Other)
  Sender: FDA-Public Use
  Company Number: CN-20120011

PATIENT
  Age: 64 Year
  Sex: Male

DRUGS (3)
  1. LIPIODOL (ETHIODIZED OIL) (ETHIODIZED OIL) [Suspect]
     Indication: THERAPEUTIC EMBOLISATION
     Route: 013
  2. ETHANOL (ETHANOL) (UNKNOWN) (ETHANOL) [Concomitant]
  3. GELATIN (GELATIN) [Concomitant]

REACTIONS (2)
  - Cerebral artery embolism [None]
  - Off label use [None]
